FAERS Safety Report 8555492-3 (Version None)
Quarter: 2012Q3

REPORT INFORMATION
  Report Type: 
  Country: None (occurrence: None)
  Receive Date: 20120731
  Receipt Date: 20120103
  Transmission Date: 20120928
  Serious: Yes (Hospitalization)
  Sender: FDA-Public Use
  Company Number: US-ASTRAZENECA-2011SE04400

PATIENT
  Age: 20 Year
  Sex: Female

DRUGS (3)
  1. SEROQUEL XR [Suspect]
     Indication: BIPOLAR DISORDER
     Route: 048
  2. SEROQUEL XR [Suspect]
     Indication: SLEEP DISORDER
     Route: 048
  3. SEROQUEL XR [Suspect]
     Indication: CONVULSION
     Route: 048

REACTIONS (6)
  - DECREASED APPETITE [None]
  - NAUSEA [None]
  - VOMITING [None]
  - DRUG WITHDRAWAL SYNDROME [None]
  - CONVULSION [None]
  - WEIGHT DECREASED [None]
